FAERS Safety Report 5039168-5 (Version None)
Quarter: 2006Q2

REPORT INFORMATION
  Report Type: 
  Country: None (occurrence: None)
  Receive Date: 20060601
  Receipt Date: 20060104
  Transmission Date: 20061013
  Serious: No
  Sender: FDA-Public Use
  Company Number: 2005PV006035

PATIENT
  Age: 57 Year
  Sex: Female
  Weight: 99.7913 kg

DRUGS (3)
  1. BYETTA [Suspect]
     Indication: DIABETES MELLITUS NON-INSULIN-DEPENDENT
     Dosage: 5 MCG;BID;SC
     Route: 058
     Dates: start: 20051215
  2. AVANDIA [Concomitant]
  3. IBUPROFEN [Concomitant]

REACTIONS (4)
  - DECREASED APPETITE [None]
  - HEADACHE [None]
  - STOMACH DISCOMFORT [None]
  - WEIGHT DECREASED [None]
